FAERS Safety Report 25548280 (Version 1)
Quarter: 2025Q3

REPORT INFORMATION
  Report Type: Spontaneous
  Country: KR (occurrence: KR)
  Receive Date: 20250714
  Receipt Date: 20250714
  Transmission Date: 20251021
  Serious: Yes (Hospitalization)
  Sender: AMGEN
  Company Number: KR-AMGEN-KORSP2025134984

PATIENT
  Age: 61 Year
  Sex: Female
  Weight: 61.5 kg

DRUGS (9)
  1. XGEVA [Suspect]
     Active Substance: DENOSUMAB
     Indication: Breast cancer
     Route: 058
     Dates: start: 20250120, end: 20250120
  2. IBRANCE [Suspect]
     Active Substance: PALBOCICLIB
     Indication: Breast cancer
     Dosage: 125 MILLIGRAM, QD
     Route: 048
     Dates: start: 20250120, end: 20250205
  3. Lenara [Concomitant]
     Indication: Breast cancer
     Route: 048
     Dates: start: 20250120
  4. Naxozol [Concomitant]
     Indication: Metastases to bone
     Route: 048
     Dates: start: 20250204
  5. PREGABALIN [Concomitant]
     Active Substance: PREGABALIN
     Indication: Metastases to bone
     Route: 048
     Dates: start: 20250204
  6. OPALMON [Concomitant]
     Active Substance: LIMAPROST
     Indication: Metastases to bone
     Route: 048
     Dates: start: 20250204
  7. Dexima [Concomitant]
     Indication: Metastases to bone
     Route: 048
     Dates: start: 20250204
  8. EZETIMIBE\ROSUVASTATIN [Concomitant]
     Active Substance: EZETIMIBE\ROSUVASTATIN
     Indication: Hyperlipidaemia
     Route: 048
     Dates: start: 2022
  9. FARXIGA [Concomitant]
     Active Substance: DAPAGLIFLOZIN PROPANEDIOL
     Indication: Diabetes mellitus
     Route: 048
     Dates: start: 2022

REACTIONS (2)
  - Pancytopenia [Recovered/Resolved]
  - Hypocalcaemia [Recovered/Resolved]

NARRATIVE: CASE EVENT DATE: 20250205
